FAERS Safety Report 13927486 (Version 1)
Quarter: 2017Q3

REPORT INFORMATION
  Report Type: Spontaneous
  Country: US (occurrence: US)
  Receive Date: 20170831
  Receipt Date: 20170831
  Transmission Date: 20171127
  Serious: Yes (Other)
  Sender: FDA-Public Use
  Company Number: None

PATIENT
  Age: 61 Year
  Sex: Male
  Weight: 106 kg

DRUGS (3)
  1. LORATADINE. [Concomitant]
     Active Substance: LORATADINE
  2. INFLIXIMAB [Suspect]
     Active Substance: INFLIXIMAB
     Indication: INFLAMMATORY BOWEL DISEASE
     Dosage: OTHER FREQUENCY:EVERY 8 WEEKS;?
     Route: 041
     Dates: start: 20160131, end: 20170820
  3. ACETAMINOPHEN. [Concomitant]
     Active Substance: ACETAMINOPHEN

REACTIONS (5)
  - Back pain [None]
  - Blood pressure decreased [None]
  - Infusion related reaction [None]
  - Musculoskeletal pain [None]
  - Chest pain [None]

NARRATIVE: CASE EVENT DATE: 20170820
